FAERS Safety Report 10022140 (Version 1)
Quarter: 2013Q4

REPORT INFORMATION
  Report Type: Spontaneous
  Country: US (occurrence: None)
  Receive Date: 20131212
  Receipt Date: 20131212
  Transmission Date: 20140711
  Serious: Yes (Hospitalization, Other)
  Sender: FDA-Public Use
  Company Number: ADR-2012-00689

PATIENT
  Sex: Female

DRUGS (2)
  1. BACLOFEN [Suspect]
     Dosage: 48.75 MCG/DAY
  2. MORPHINE [Suspect]

REACTIONS (21)
  - Device leakage [None]
  - Drug withdrawal syndrome [None]
  - Feeling of body temperature change [None]
  - Headache [None]
  - Pruritus [None]
  - Device breakage [None]
  - Tremor [None]
  - Pruritus [None]
  - Implant site reaction [None]
  - Swelling [None]
  - Abdominal discomfort [None]
  - Pain [None]
  - Abasia [None]
  - Hypoaesthesia [None]
  - Crying [None]
  - Sleep disorder [None]
  - Pharyngeal oedema [None]
  - Rash [None]
  - Fall [None]
  - Anuria [None]
  - Functional gastrointestinal disorder [None]
